FAERS Safety Report 12911951 (Version 2)
Quarter: 2016Q4

REPORT INFORMATION
  Report Type: Spontaneous
  Country: FR (occurrence: FR)
  Receive Date: 20161104
  Receipt Date: 20161215
  Transmission Date: 20170207
  Serious: Yes (Hospitalization, Other)
  Sender: FDA-Public Use
  Company Number: FR-GLAXOSMITHKLINE-FR2016GSK159530

PATIENT
  Age: 26 Year
  Sex: Female
  Weight: 85 kg

DRUGS (6)
  1. CIFLOX [Suspect]
     Active Substance: CIPROFLOXACIN
     Indication: INFECTION
     Dosage: 500 MG, BID
     Route: 048
     Dates: start: 20161019, end: 20161025
  2. FLAGYL [Suspect]
     Active Substance: METRONIDAZOLE\METRONIDAZOLE HYDROCHLORIDE
     Indication: GENITAL INFECTION FEMALE
     Dosage: 500 MG, BID
  3. DEBRIDAT [Concomitant]
     Active Substance: TRIMEBUTINE MALEATE
     Dosage: 200 MG, TID
  4. INNOHEP [Concomitant]
     Active Substance: TINZAPARIN SODIUM
     Dosage: UNK UNK, 1D
     Route: 042
  5. SPIFEN [Concomitant]
     Active Substance: IBUPROFEN
     Dosage: 400 MG, BID
  6. LAMICTAL [Suspect]
     Active Substance: LAMOTRIGINE
     Indication: PRODUCT USED FOR UNKNOWN INDICATION
     Dosage: UNK

REACTIONS (5)
  - Loss of consciousness [Unknown]
  - Epilepsy [Recovered/Resolved]
  - Genital infection female [Unknown]
  - Disorientation [Unknown]
  - Somnolence [Unknown]

NARRATIVE: CASE EVENT DATE: 20161025
